FAERS Safety Report 24648277 (Version 1)
Quarter: 2024Q4

REPORT INFORMATION
  Report Type: Spontaneous
  Country: US (occurrence: None)
  Receive Date: 20241121
  Receipt Date: 20241121
  Transmission Date: 20250115
  Serious: Yes (Death)
  Sender: Public
  Company Number: None

PATIENT
  Age: 80 Year
  Sex: Female
  Weight: 51.48 kg

DRUGS (13)
  1. POMALYST [Suspect]
     Active Substance: POMALIDOMIDE
     Indication: Plasma cell myeloma
     Dosage: FREQUENCY : DAILY;?
     Route: 048
     Dates: start: 20240924, end: 20241111
  2. DEXAMETHASONE [Concomitant]
  3. arxio [Concomitant]
  4. ELIQUIS [Concomitant]
  5. acyclovir [Concomitant]
  6. BACTRIM DS [Concomitant]
  7. Calcium-600 [Concomitant]
  8. ENOXAPARIN [Concomitant]
  9. GABAPENTIN [Concomitant]
  10. MIDODRINE [Concomitant]
  11. ONDANSETRON [Concomitant]
  12. SPIRONOLACTONE [Concomitant]
  13. VITAMIN D3 [Concomitant]

REACTIONS (1)
  - Death [None]

NARRATIVE: CASE EVENT DATE: 20241111
